FAERS Safety Report 9205348 (Version 1)
Quarter: 2013Q2

REPORT INFORMATION
  Report Type: Report from Study
  Country: US (occurrence: US)
  Receive Date: 20130402
  Receipt Date: 20130402
  Transmission Date: 20140414
  Serious: Yes (Death, Hospitalization)
  Sender: FDA-Public Use
  Company Number: US-BAYER-2013-002159

PATIENT
  Age: 52 Year
  Sex: Male

DRUGS (1)
  1. STIVARGA [Suspect]
     Indication: COLON CANCER
     Dosage: 40 MG, 4 TABLETS, QD
     Route: 048
     Dates: start: 201211, end: 20130204

REACTIONS (15)
  - Pneumonia [Fatal]
  - Pulmonary embolism [Fatal]
  - Dyspnoea [Fatal]
  - Hepatic encephalopathy [Not Recovered/Not Resolved]
  - Hallucination, auditory [Not Recovered/Not Resolved]
  - Nightmare [Not Recovered/Not Resolved]
  - Ocular icterus [Not Recovered/Not Resolved]
  - Hepatic enzyme increased [None]
  - Head injury [None]
  - Weight decreased [Not Recovered/Not Resolved]
  - Social avoidant behaviour [Not Recovered/Not Resolved]
  - Decreased appetite [Not Recovered/Not Resolved]
  - Ammonia increased [None]
  - Constipation [Not Recovered/Not Resolved]
  - Dysphonia [Not Recovered/Not Resolved]
